FAERS Safety Report 21725854 (Version 14)
Quarter: 2023Q4

REPORT INFORMATION
  Report Type: Spontaneous
  Country: CA (occurrence: CA)
  Receive Date: 20221214
  Receipt Date: 20231204
  Transmission Date: 20240110
  Serious: Yes (Other)
  Sender: FDA-Public Use
  Company Number: CA-CELLTRION INC.-2022CA020958

PATIENT

DRUGS (6)
  1. INFLECTRA [Suspect]
     Active Substance: INFLIXIMAB-DYYB
     Indication: Crohn^s disease
     Dosage: 400 MG 0, 2, 6, THEN EVERY 8 WEEKS
     Route: 042
     Dates: start: 20221116, end: 20221229
  2. INFLECTRA [Suspect]
     Active Substance: INFLIXIMAB-DYYB
     Dosage: 400 MG 0, 2, 6, THEN EVERY 8 WEEKS
     Route: 042
     Dates: start: 20221229, end: 20221229
  3. INFLECTRA [Suspect]
     Active Substance: INFLIXIMAB-DYYB
     Dosage: 400 MG, RELOAD W 0, 2, 6, THEN EVERY 8 WEEKS [WEEK 0]
     Route: 042
     Dates: start: 20231103
  4. INFLECTRA [Suspect]
     Active Substance: INFLIXIMAB-DYYB
     Dosage: 400 MG, RELOAD W 0, 2, 6, THEN EVERY 8 WEEKS (AFTER 2 WEEKS (WEEK 2 REINDUCTION))
     Route: 042
     Dates: start: 20231117
  5. IRON [ASCORBIC ACID;FRUCTOOLIGOSACCHARIDES;IRON PENTACARBONYL] [Concomitant]
     Dosage: UNK
  6. SYNTHROID [Concomitant]
     Active Substance: LEVOTHYROXINE SODIUM
     Dosage: UNK

REACTIONS (20)
  - Anal abscess [Recovered/Resolved]
  - Disease recurrence [Recovered/Resolved]
  - Anal fistula [Not Recovered/Not Resolved]
  - Disease recurrence [Not Recovered/Not Resolved]
  - Abscess [Recovered/Resolved]
  - Urticaria [Recovering/Resolving]
  - Pruritus [Recovering/Resolving]
  - Nausea [Recovering/Resolving]
  - Throat irritation [Unknown]
  - Anaphylactic reaction [Recovering/Resolving]
  - Drug specific antibody present [Unknown]
  - Gastrointestinal disorder [Unknown]
  - Infection [Not Recovered/Not Resolved]
  - Inflammation [Not Recovered/Not Resolved]
  - Pyrexia [Unknown]
  - Arthralgia [Unknown]
  - Condition aggravated [Not Recovered/Not Resolved]
  - Off label use [Unknown]
  - Off label use [Unknown]
  - Intentional product use issue [Unknown]

NARRATIVE: CASE EVENT DATE: 20220101
